FAERS Safety Report 4791215-1 (Version None)
Quarter: 2005Q4

REPORT INFORMATION
  Report Type: 
  Country: None (occurrence: None)
  Receive Date: 20051007
  Receipt Date: 20050927
  Transmission Date: 20060501
  Serious: Yes (Hospitalization)
  Sender: FDA-Public Use
  Company Number: FR-BRISTOL-MYERS SQUIBB COMPANY-13125778

PATIENT
  Age: 92 Year
  Sex: Female

DRUGS (8)
  1. COUMADIN [Suspect]
     Indication: ATRIAL FIBRILLATION
     Route: 048
     Dates: start: 20050104
  2. RULID [Suspect]
     Indication: ERYSIPELAS
     Dates: start: 20041223, end: 20050107
  3. PREVISCAN [Suspect]
     Dosage: ^0.5 TABLET 2/3 DAYS, 0.5 TABLET 1/3 DAYS^
     Dates: start: 20031101, end: 20050103
  4. STILNOX [Concomitant]
     Dates: start: 20040611
  5. ZESTORETIC [Concomitant]
     Dates: start: 20021105, end: 20050106
  6. ZESTRIL [Concomitant]
     Dates: start: 20050107, end: 20050111
  7. ADANCOR [Concomitant]
     Dates: start: 20040611, end: 20050111
  8. LANZOR [Concomitant]
     Route: 048
     Dates: start: 20041110, end: 20050104

REACTIONS (3)
  - COLITIS [None]
  - GASTROINTESTINAL HAEMORRHAGE [None]
  - VASCULITIS [None]
